FAERS Safety Report 7333717-X (Version None)
Quarter: 2011Q1

REPORT INFORMATION
  Report Type: 
  Country: None (occurrence: None)
  Receive Date: 20110306
  Receipt Date: 20110211
  Transmission Date: 20110831
  Serious: No
  Sender: FDA-Public Use
  Company Number: US-BAYER-2011-015173

PATIENT
  Sex: Female
  Weight: 46 kg

DRUGS (5)
  1. SYMBICORT [Concomitant]
  2. COMBIVENT [Concomitant]
  3. ALEVE (CAPLET) [Suspect]
     Dosage: TOOK 2DF EVERY 12 HOURS, BOTTLE COUNT 40CT
     Route: 048
     Dates: start: 20110201
  4. METAMUCIL-2 [Concomitant]
  5. MULTI-VITAMINS [Concomitant]

REACTIONS (1)
  - NO ADVERSE EVENT [None]
